FAERS Safety Report 7936676-1 (Version None)
Quarter: 2011Q4

REPORT INFORMATION
  Report Type: 
  Country: None (occurrence: None)
  Receive Date: 20111123
  Receipt Date: 20111118
  Transmission Date: 20120403
  Serious: Yes (Hospitalization)
  Sender: FDA-Public Use
  Company Number: US-BAYER-2011-101495

PATIENT
  Age: 58 Year
  Sex: Male

DRUGS (1)
  1. SORAFENIB (RAF KINASE INHIBITOR) [Suspect]
     Indication: PRODUCT USED FOR UNKNOWN INDICATION
     Dosage: 400 MG, BID
     Dates: start: 20110924

REACTIONS (5)
  - HYPERKERATOSIS [None]
  - DRY SKIN [None]
  - POST PROCEDURAL HAEMORRHAGE [None]
  - PAIN IN EXTREMITY [None]
  - FATIGUE [None]
